FAERS Safety Report 9133941 (Version 2)
Quarter: 2013Q1

REPORT INFORMATION
  Report Type: Spontaneous
  Country: US (occurrence: US)
  Receive Date: 20130118
  Receipt Date: 20130206
  Transmission Date: 20140127
  Serious: Yes (Life-Threatening, Hospitalization)
  Sender: FDA-Public Use
  Company Number: US-BRACCO-009055

PATIENT
  Age: 62 None
  Sex: Female
  Weight: 54 kg

DRUGS (8)
  1. GASTROGRAFIN [Suspect]
     Indication: X-RAY WITH CONTRAST UPPER GASTROINTESTINAL TRACT
     Dosage: 1 BOTTLE
     Route: 048
     Dates: start: 20120116, end: 20120116
  2. ACYCLOVIR [Concomitant]
     Dosage: 800 MG IN AM AND 800 MG IN PM
  3. ATENOLOL [Concomitant]
     Indication: VENTRICULAR EXTRASYSTOLES
     Dosage: 25 MG IN AM AND 25 MG IN PM
  4. PEPCID AC [Concomitant]
     Indication: BARRETT^S OESOPHAGUS
     Dosage: 20 MG IN AM AND 20 MG IN PM
  5. ADVIL [Concomitant]
     Indication: PAIN
  6. ALPRAZOLAM [Concomitant]
  7. BENADRYL [Concomitant]
     Indication: DRUG HYPERSENSITIVITY
     Dosage: AS NEEDED
  8. MOMETASONE FUROATE [Concomitant]
     Indication: PUSTULAR PSORIASIS
     Dosage: 0.1% CREAM

REACTIONS (5)
  - Loss of consciousness [Recovered/Resolved]
  - Diarrhoea [Recovered/Resolved]
  - Faecal incontinence [Recovered/Resolved]
  - Urinary incontinence [Recovered/Resolved]
  - Vomiting [Recovered/Resolved]
